FAERS Safety Report 17430992 (Version 1)
Quarter: 2020Q1

REPORT INFORMATION
  Report Type: Report from Study
  Country: MX (occurrence: MX)
  Receive Date: 20200218
  Receipt Date: 20200218
  Transmission Date: 20200409
  Serious: Yes (Other)
  Sender: FDA-Public Use
  Company Number: NVSC2020MX039355

PATIENT
  Sex: Male

DRUGS (7)
  1. TEGRETOL [Suspect]
     Active Substance: CARBAMAZEPINE
     Dosage: 1 DF (400 MG), QD
     Route: 048
     Dates: start: 20191203
  2. EFFIENT [Concomitant]
     Active Substance: PRASUGREL HYDROCHLORIDE
     Indication: CARDIAC DISORDER
     Dosage: 1 DF, QD
     Route: 048
     Dates: start: 2013
  3. VYTORIN [Concomitant]
     Active Substance: EZETIMIBE\SIMVASTATIN
     Indication: PRODUCT USED FOR UNKNOWN INDICATION
     Dosage: 1 DF, QD
     Route: 065
     Dates: start: 2013
  4. AMITRIPTYLINE [Suspect]
     Active Substance: AMITRIPTYLINE
     Indication: PRODUCT USED FOR UNKNOWN INDICATION
     Dosage: 2.5 MG
     Route: 048
     Dates: start: 2011, end: 201912
  5. PRISTIQ EXTENDED-RELEASE [Concomitant]
     Active Substance: DESVENLAFAXINE SUCCINATE
     Indication: PRODUCT USED FOR UNKNOWN INDICATION
     Dosage: UNK
     Route: 065
     Dates: start: 201912
  6. TEGRETOL [Suspect]
     Active Substance: CARBAMAZEPINE
     Indication: SEIZURE
     Dosage: 0.5 DF, QD, (400 MG)
     Route: 048
     Dates: start: 2010, end: 20191203
  7. TEGRETOL [Suspect]
     Active Substance: CARBAMAZEPINE
     Dosage: 1 DF (400 MG), QD
     Route: 048

REACTIONS (11)
  - Drug dependence [Unknown]
  - Cognitive disorder [Unknown]
  - Hypersomnia [Unknown]
  - Weight decreased [Unknown]
  - Restlessness [Recovering/Resolving]
  - Blood triglycerides [Unknown]
  - Hypertension [Unknown]
  - Lethargy [Unknown]
  - Abnormal behaviour [Unknown]
  - Product use in unapproved indication [Unknown]
  - Weight increased [Unknown]
